FAERS Safety Report 11827822 (Version 1)
Quarter: 2015Q4

REPORT INFORMATION
  Report Type: Spontaneous
  Country: US (occurrence: US)
  Receive Date: 20151211
  Receipt Date: 20151211
  Transmission Date: 20160305
  Serious: No
  Sender: FDA-Public Use
  Company Number: US-BAYER-2015-487030

PATIENT
  Age: 88 Year
  Sex: Male

DRUGS (2)
  1. MIRALAX [Suspect]
     Active Substance: POLYETHYLENE GLYCOL 3350
     Indication: COLON CANCER
     Dosage: UNK, QD
     Route: 048
     Dates: start: 2015
  2. MIRALAX [Suspect]
     Active Substance: POLYETHYLENE GLYCOL 3350
     Indication: HERNIA

REACTIONS (3)
  - Diarrhoea [None]
  - Product use issue [None]
  - Hernia [None]

NARRATIVE: CASE EVENT DATE: 2015
